FAERS Safety Report 4507636-8 (Version None)
Quarter: 2004Q4

REPORT INFORMATION
  Report Type: 
  Country: None (occurrence: None)
  Receive Date: 20040928
  Receipt Date: 20040609
  Transmission Date: 20050328
  Serious: Yes (Hospitalization)
  Sender: FDA-Public Use
  Company Number: 04P-163-0263407-00

PATIENT
  Age: 69 Year
  Sex: Female

DRUGS (9)
  1. HUMIRA [Suspect]
     Indication: RHEUMATOID ARTHRITIS
     Dosage: 40 MG, 1 IN 2 WK, SUBCUTANEOUS
     Route: 058
     Dates: start: 20030601
  2. IBUPROFEN [Concomitant]
  3. RISEDRONATE SODIUM [Concomitant]
  4. VICODIN [Concomitant]
  5. MULTI-VITAMINS [Concomitant]
  6. CALCIUM CARBONATE [Concomitant]
  7. PREDNISONE [Concomitant]
  8. PANTOPRAZOLE [Concomitant]
  9. NAPROXEN [Concomitant]

REACTIONS (2)
  - SEPSIS [None]
  - URINARY TRACT INFECTION [None]
